FAERS Safety Report 8511531-7 (Version None)
Quarter: 2012Q3

REPORT INFORMATION
  Report Type: 
  Country: None (occurrence: None)
  Receive Date: 20120716
  Receipt Date: 20120705
  Transmission Date: 20120928
  Serious: Yes (Other)
  Sender: FDA-Public Use
  Company Number: US-VERTEX PHARMACEUTICALS INC.-AE-2012-005425

PATIENT
  Sex: Male
  Weight: 77.634 kg

DRUGS (12)
  1. PEGASYS [Concomitant]
     Indication: HEPATITIS C
     Dates: start: 20120210, end: 20120417
  2. FISH OIL [Concomitant]
     Route: 048
  3. MULTIVITAMIN WITH MINERALS [Concomitant]
     Route: 048
  4. RYTHMOL SR [Concomitant]
     Route: 048
  5. VENTOIN HFA [Concomitant]
  6. INCIVEK [Suspect]
     Indication: HEPATITIS C
     Route: 048
     Dates: start: 20120210, end: 20120416
  7. RIBAVIRIN [Concomitant]
     Indication: HEPATITIS C
     Dates: start: 20120210, end: 20120417
  8. THYROID TAB [Concomitant]
     Route: 048
  9. RANITIDINE HYDROCHLORIDE [Concomitant]
     Route: 048
  10. RIBAVIRIN [Concomitant]
  11. FERROUS SULFATE TAB [Concomitant]
     Route: 048
  12. VITAMIN D [Concomitant]
     Route: 048

REACTIONS (3)
  - HAEMOGLOBIN DECREASED [None]
  - RASH GENERALISED [None]
  - WHITE BLOOD CELL COUNT DECREASED [None]
